FAERS Safety Report 17612596 (Version 2)
Quarter: 2020Q3

REPORT INFORMATION
  Report Type: Spontaneous
  Country: US (occurrence: US)
  Receive Date: 20200401
  Receipt Date: 20200707
  Transmission Date: 20201102
  Serious: No
  Sender: FDA-Public Use
  Company Number: US-TEVA-2020-US-1213907

PATIENT
  Sex: Female

DRUGS (1)
  1. IRBESARTAN TEVA [Suspect]
     Active Substance: IRBESARTAN
     Dosage: DOSE: 150? 12
     Route: 065
     Dates: start: 20200214, end: 20200323

REACTIONS (7)
  - Blood pressure increased [Recovered/Resolved]
  - Product substitution issue [Unknown]
  - Headache [Recovered/Resolved]
  - Balance disorder [Recovered/Resolved]
  - Drug ineffective [Unknown]
  - Dizziness [None]
  - Nausea [Recovered/Resolved]
